FAERS Safety Report 11902473 (Version 1)
Quarter: 2016Q1

REPORT INFORMATION
  Report Type: Spontaneous
  Country: BR (occurrence: BR)
  Receive Date: 20160108
  Receipt Date: 20160108
  Transmission Date: 20160526
  Serious: Yes (Hospitalization, Other)
  Sender: FDA-Public Use
  Company Number: BR-009507513-1601BRA002368

PATIENT
  Age: 23 Year
  Sex: Female
  Weight: 64 kg

DRUGS (1)
  1. MERCILON  CONTI [Suspect]
     Active Substance: DESOGESTREL\ETHINYL ESTRADIOL
     Indication: CONTRACEPTION
     Dosage: UNK
     Route: 048
     Dates: start: 2001, end: 2005

REACTIONS (5)
  - Foetal malposition [Recovered/Resolved]
  - Maternal exposure before pregnancy [Recovered/Resolved]
  - Pre-eclampsia [Recovered/Resolved]
  - Caesarean section [Recovered/Resolved]
  - Premature delivery [Recovered/Resolved]

NARRATIVE: CASE EVENT DATE: 20060426
